FAERS Safety Report 18933974 (Version 1)
Quarter: 2021Q1

REPORT INFORMATION
  Report Type: Spontaneous
  Country: US (occurrence: US)
  Receive Date: 20210224
  Receipt Date: 20210224
  Transmission Date: 20210420
  Serious: No
  Sender: FDA-Public Use
  Company Number: None

PATIENT
  Age: 85 Year
  Sex: Female
  Weight: 44.55 kg

DRUGS (6)
  1. LOSARTAN POTASSIUM. [Concomitant]
     Active Substance: LOSARTAN POTASSIUM
  2. CAPECITABINE. [Suspect]
     Active Substance: CAPECITABINE
     Indication: MALIGNANT NEOPLASM OF AMPULLA OF VATER
     Route: 048
     Dates: start: 20201015, end: 20210224
  3. VITAMIN B12 [Concomitant]
     Active Substance: CYANOCOBALAMIN
  4. HYDROCODONE?ACETAMINOPHEN [Concomitant]
     Active Substance: ACETAMINOPHEN\HYDROCODONE
  5. BASAGLAR KWIKPEN [Concomitant]
     Active Substance: INSULIN GLARGINE
  6. DETROL LA [Concomitant]
     Active Substance: TOLTERODINE TARTRATE

REACTIONS (3)
  - Adverse drug reaction [None]
  - Lacrimation increased [None]
  - Eyelid function disorder [None]

NARRATIVE: CASE EVENT DATE: 20210224
